FAERS Safety Report 5990062-2 (Version None)
Quarter: 2008Q4

REPORT INFORMATION
  Report Type: 
  Country: None (occurrence: None)
  Receive Date: 20081208
  Receipt Date: 20081121
  Transmission Date: 20090506
  Serious: Yes (Other)
  Sender: FDA-Public Use
  Company Number: 200814099

PATIENT
  Age: 9 Year
  Sex: Male
  Weight: 29.1 kg

DRUGS (10)
  1. VIVAGLOBIN [Suspect]
     Indication: HYPOGAMMAGLOBULINAEMIA
     Dosage: SC
     Route: 058
     Dates: start: 20080829, end: 20080829
  2. VIVAGLOBIN [Suspect]
     Dosage: SC
     Route: 058
     Dates: start: 20080829, end: 20080829
  3. VIVAGLOBIN [Suspect]
     Dosage: SC
     Route: 058
     Dates: start: 20080829, end: 20080829
  4. SEPTRA [Concomitant]
  5. SODIUM BICARBONATE [Concomitant]
  6. DIFLUCAN [Concomitant]
  7. SYNTHROID [Concomitant]
  8. RITALIN [Concomitant]
  9. ALLEGRA [Concomitant]
  10. LEXAPRO [Concomitant]

REACTIONS (7)
  - ABNORMAL BEHAVIOUR [None]
  - COGNITIVE DISORDER [None]
  - HEADACHE [None]
  - NERVOUS SYSTEM DISORDER [None]
  - SELF-MEDICATION [None]
  - VISION BLURRED [None]
  - WEIGHT DECREASED [None]
